FAERS Safety Report 7489997-3 (Version None)
Quarter: 2011Q2

REPORT INFORMATION
  Report Type: 
  Country: None (occurrence: None)
  Receive Date: 20110512
  Receipt Date: 20110429
  Transmission Date: 20111010
  Serious: Yes (Other)
  Sender: FDA-Public Use
  Company Number: GER/ITL/11/0018204

PATIENT
  Age: 86 Year
  Sex: Female

DRUGS (4)
  1. CLOPIDOGREL [Suspect]
     Indication: THROMBOSIS PROPHYLAXIS
     Dosage: 75 MG, 1 IN 1 D, ORAL
     Route: 048
     Dates: start: 20110406, end: 20110406
  2. TENSOZIDE (ELIDIUR) [Concomitant]
  3. PANTOPAN (PANTOPRAZOLE SODIUM) [Concomitant]
  4. CRESTOR [Concomitant]

REACTIONS (3)
  - ABDOMINAL PAIN [None]
  - ANGIOEDEMA [None]
  - NAUSEA [None]
